FAERS Safety Report 25427181 (Version 1)
Quarter: 2025Q2

REPORT INFORMATION
  Report Type: Spontaneous
  Country: TR (occurrence: TR)
  Receive Date: 20250612
  Receipt Date: 20250612
  Transmission Date: 20250717
  Serious: Yes (Other)
  Sender: SANOFI AVENTIS
  Company Number: TR-DialogSolutions-SAAVPROD-PI785529-C1

PATIENT
  Age: 36 Year
  Sex: Female

DRUGS (3)
  1. ALEMTUZUMAB [Suspect]
     Active Substance: ALEMTUZUMAB
     Indication: Relapsing-remitting multiple sclerosis
     Dates: start: 201912
  2. ALEMTUZUMAB [Suspect]
     Active Substance: ALEMTUZUMAB
     Dates: start: 202012
  3. HYDROXYCHLOROQUINE SULFATE [Suspect]
     Active Substance: HYDROXYCHLOROQUINE SULFATE
     Dates: start: 2023

REACTIONS (10)
  - Systemic lupus erythematosus [Unknown]
  - Pain [Unknown]
  - Peripheral swelling [Unknown]
  - Condition aggravated [Unknown]
  - Pancytopenia [Unknown]
  - Proteinuria [Unknown]
  - Pericardial effusion [Unknown]
  - Pleural effusion [Unknown]
  - Sjogren^s syndrome [Unknown]
  - Off label use [Unknown]

NARRATIVE: CASE EVENT DATE: 20230101
